FAERS Safety Report 4990045-5 (Version None)
Quarter: 2006Q2

REPORT INFORMATION
  Report Type: 
  Country: None (occurrence: None)
  Receive Date: 20060427
  Receipt Date: 20060421
  Transmission Date: 20061013
  Serious: Yes (Other)
  Sender: FDA-Public Use
  Company Number: 2006049999

PATIENT
  Age: 57 Year
  Sex: Male
  Weight: 80 kg

DRUGS (2)
  1. CABERGOLINE [Suspect]
     Indication: PARKINSON'S DISEASE
     Dosage: 4 MG, ORAL
     Route: 048
     Dates: start: 20020801, end: 20060320
  2. NACOM ^DUPONT PHARMA^ (CARBIDOPA, LEVODOPA) [Concomitant]

REACTIONS (1)
  - AORTIC VALVE SCLEROSIS [None]
